FAERS Safety Report 4338409-7 (Version None)
Quarter: 2004Q1

REPORT INFORMATION
  Report Type: 
  Country: None (occurrence: None)
  Receive Date: 20040329
  Receipt Date: 20040219
  Transmission Date: 20041129
  Serious: No
  Sender: FDA-Public Use
  Company Number: USA040259912

PATIENT
  Age: 10 Year
  Sex: Female
  Weight: 27 kg

DRUGS (1)
  1. STRATTERA [Suspect]
     Indication: ATTENTION DEFICIT/HYPERACTIVITY DISORDER
     Dosage: 25 MG DAY
     Dates: start: 20040211, end: 20040218

REACTIONS (4)
  - CONJUNCTIVITIS [None]
  - PHARYNGEAL ERYTHEMA [None]
  - RETCHING [None]
  - VOMITING [None]
